FAERS Safety Report 7549691-7 (Version None)
Quarter: 2011Q2

REPORT INFORMATION
  Report Type: 
  Country: None (occurrence: None)
  Receive Date: 20110615
  Receipt Date: 20110601
  Transmission Date: 20111010
  Serious: Yes (Hospitalization, Disabling)
  Sender: FDA-Public Use
  Company Number: US-JNJFOC-20110603038

PATIENT
  Sex: Female
  Weight: 46.6 kg

DRUGS (5)
  1. HUMIRA [Concomitant]
     Dates: start: 20110426
  2. REMICADE [Suspect]
     Route: 042
     Dates: start: 20110209, end: 20110209
  3. HUMIRA [Concomitant]
     Indication: CROHN'S DISEASE
     Dates: start: 20110511
  4. REMICADE [Suspect]
     Indication: CROHN'S DISEASE
     Route: 042
     Dates: start: 20081203
  5. HUMIRA [Concomitant]
     Dates: start: 20110525

REACTIONS (1)
  - CROHN'S DISEASE [None]
